FAERS Safety Report 4718865-2 (Version None)
Quarter: 2005Q3

REPORT INFORMATION
  Report Type: 
  Country: None (occurrence: None)
  Receive Date: 20050719
  Receipt Date: 20050702
  Transmission Date: 20060218
  Serious: Yes (Disabling)
  Sender: FDA-Public Use
  Company Number: 033-5

PATIENT
  Age: 54 Year
  Sex: Male

DRUGS (2)
  1. TEVETEN HCT [Suspect]
     Indication: HYPERTENSION
     Dosage: 600 MG QD PO
     Route: 048
     Dates: start: 20041028, end: 20041205
  2. VENLAFAXINE HCL [Concomitant]

REACTIONS (1)
  - HEADACHE [None]
